FAERS Safety Report 16178795 (Version 1)
Quarter: 2019Q2

REPORT INFORMATION
  Report Type: Spontaneous
  Country: US (occurrence: US)
  Receive Date: 20190409
  Receipt Date: 20190409
  Transmission Date: 20190711
  Serious: Yes (Hospitalization)
  Sender: FDA-Public Use
  Company Number: None

PATIENT
  Age: 59 Year
  Sex: Female

DRUGS (7)
  1. ESTRADIOL. [Concomitant]
     Active Substance: ESTRADIOL
  2. PANTAPROZOLE [Concomitant]
     Active Substance: PANTOPRAZOLE SODIUM
  3. COLCHICINE. [Concomitant]
     Active Substance: COLCHICINE
  4. BENLYSTA [Suspect]
     Active Substance: BELIMUMAB
     Indication: SYSTEMIC LUPUS ERYTHEMATOSUS
  5. DULOXETINE. [Concomitant]
     Active Substance: DULOXETINE
  6. VALSARTAN. [Concomitant]
     Active Substance: VALSARTAN
  7. GABAPENTIN. [Concomitant]
     Active Substance: GABAPENTIN

REACTIONS (1)
  - Condition aggravated [None]

NARRATIVE: CASE EVENT DATE: 20190308
